FAERS Safety Report 13933717 (Version 3)
Quarter: 2017Q4

REPORT INFORMATION
  Report Type: Spontaneous
  Country: US (occurrence: US)
  Receive Date: 20170904
  Receipt Date: 20171114
  Transmission Date: 20180320
  Serious: Yes (Hospitalization)
  Sender: FDA-Public Use
  Company Number: US-DSJP-DSU-2017-134217

PATIENT

DRUGS (4)
  1. AZOR [Suspect]
     Active Substance: AMLODIPINE BESYLATE\OLMESARTAN MEDOXOMIL
     Indication: PRODUCT USED FOR UNKNOWN INDICATION
     Dosage: UNK
     Dates: start: 20090210, end: 20170818
  2. BENICAR [Suspect]
     Active Substance: OLMESARTAN MEDOXOMIL
     Dosage: 20 MG, QD
     Dates: start: 20090210, end: 20170818
  3. BENICAR HCT [Suspect]
     Active Substance: HYDROCHLOROTHIAZIDE\OLMESARTAN MEDOXOMIL
     Indication: ESSENTIAL HYPERTENSION
     Dosage: 40/25MG 1 TABLET IN MORNING
     Route: 048
     Dates: start: 20090210, end: 20170818
  4. BENICAR [Suspect]
     Active Substance: OLMESARTAN MEDOXOMIL
     Indication: ESSENTIAL HYPERTENSION
     Dosage: 40 MG, QD
     Route: 048
     Dates: start: 20090210, end: 20170818

REACTIONS (8)
  - Gastrointestinal inflammation [Recovering/Resolving]
  - Haematemesis [Unknown]
  - Gastritis [Unknown]
  - Diverticulum intestinal [Unknown]
  - Colitis [Unknown]
  - Weight decreased [Recovered/Resolved]
  - Hospitalisation [Unknown]
  - Gastric polyps [Unknown]

NARRATIVE: CASE EVENT DATE: 20090210
